FAERS Safety Report 25004799 (Version 1)
Quarter: 2025Q1

REPORT INFORMATION
  Report Type: Spontaneous
  Country: US (occurrence: None)
  Receive Date: 20250223
  Receipt Date: 20250223
  Transmission Date: 20250408
  Serious: Yes (Death)
  Sender: FDA-CTU
  Company Number: None

PATIENT
  Age: 26 Year
  Sex: Female
  Weight: 45 kg

DRUGS (2)
  1. HERBALS\MITRAGYNINE [Suspect]
     Active Substance: HERBALS\MITRAGYNINE
     Indication: Disturbance in social behaviour
     Dates: start: 20230301
  2. CORTISONE [Concomitant]
     Active Substance: CORTISONE

REACTIONS (1)
  - Overdose [None]

NARRATIVE: CASE EVENT DATE: 20230803
